FAERS Safety Report 5072656-4 (Version None)
Quarter: 2006Q3

REPORT INFORMATION
  Report Type: 
  Country: None (occurrence: None)
  Receive Date: 20060807
  Receipt Date: 20060731
  Transmission Date: 20061208
  Serious: Yes (Hospitalization)
  Sender: FDA-Public Use
  Company Number: FI-GLAXOSMITHKLINE-B0433148A

PATIENT
  Age: 65 Year
  Sex: Male

DRUGS (1)
  1. VENTOLIN [Suspect]
     Indication: SPIROMETRY
     Route: 055

REACTIONS (4)
  - BURNING SENSATION [None]
  - ERYTHEMA [None]
  - LOSS OF CONSCIOUSNESS [None]
  - NAUSEA [None]
